FAERS Safety Report 4658759-4 (Version None)
Quarter: 2005Q2

REPORT INFORMATION
  Report Type: 
  Country: None (occurrence: None)
  Receive Date: 20050509
  Receipt Date: 20050427
  Transmission Date: 20051028
  Serious: Yes (Hospitalization)
  Sender: FDA-Public Use
  Company Number: 004693

PATIENT
  Age: 32 Year
  Sex: Female

DRUGS (1)
  1. PLAN B [Suspect]
     Indication: CONTRACEPTION
     Dosage: 1.00 TABLET, Q12HR, ORAL
     Route: 048
     Dates: start: 20050423, end: 20050423

REACTIONS (6)
  - ANAEMIA [None]
  - EPISTAXIS [None]
  - NAUSEA [None]
  - PLASMAPHERESIS [None]
  - THROMBOTIC THROMBOCYTOPENIC PURPURA [None]
  - VOMITING [None]
